FAERS Safety Report 18746471 (Version 1)
Quarter: 2021Q1

REPORT INFORMATION
  Report Type: Spontaneous
  Country: US (occurrence: US)
  Receive Date: 20210114
  Receipt Date: 20210114
  Transmission Date: 20210419
  Serious: Yes (Hospitalization)
  Sender: FDA-Public Use
  Company Number: None

PATIENT
  Sex: Female

DRUGS (3)
  1. HUMIRA [Suspect]
     Active Substance: ADALIMUMAB
     Indication: CROHN^S DISEASE
     Route: 058
     Dates: start: 20180206
  2. VITAMIN D [Concomitant]
     Active Substance: VITAMIN D NOS
  3. ZEXANTITHIN POW [Concomitant]

REACTIONS (1)
  - Intestinal resection [None]
